APPROVED DRUG PRODUCT: BAYCOL
Active Ingredient: CERIVASTATIN SODIUM
Strength: 0.4MG
Dosage Form/Route: TABLET;ORAL
Application: N020740 | Product #005
Applicant: BAYER PHARMACEUTICALS CORP
Approved: May 24, 1999 | RLD: No | RS: No | Type: DISCN